FAERS Safety Report 22372492 (Version 2)
Quarter: 2023Q2

REPORT INFORMATION
  Report Type: Other
  Country: DK (occurrence: DK)
  Receive Date: 20230526
  Receipt Date: 20230628
  Transmission Date: 20230721
  Serious: Yes (Other)
  Sender: FDA-Public Use
  Company Number: DK-ROCHE-3357395

PATIENT
  Age: 67 Year
  Sex: Female

DRUGS (2)
  1. RITUXIMAB [Suspect]
     Active Substance: RITUXIMAB
     Indication: Mantle cell lymphoma stage IV
     Route: 065
  2. RITUXIMAB [Suspect]
     Active Substance: RITUXIMAB
     Indication: Non-Hodgkin^s lymphoma

REACTIONS (4)
  - Bacterial infection [Recovered/Resolved]
  - Haemophagocytic lymphohistiocytosis [Unknown]
  - Off label use [Unknown]
  - Lyme disease [Unknown]

NARRATIVE: CASE EVENT DATE: 20201001
